FAERS Safety Report 4880848-X (Version None)
Quarter: 2005Q4

REPORT INFORMATION
  Report Type: 
  Country: None (occurrence: None)
  Receive Date: 20051223
  Receipt Date: 20051031
  Transmission Date: 20060501
  Serious: No
  Sender: FDA-Public Use
  Company Number: 05P-163-0315872-00

PATIENT
  Age: 47 Year
  Sex: Female
  Weight: 87.9978 kg

DRUGS (5)
  1. HUMIRA [Suspect]
     Indication: RHEUMATOID ARTHRITIS
     Dosage: 40 MG, AS REQUIRED, SUBCUTANEOUS
     Route: 058
  2. SINGULAIR [Concomitant]
  3. SERETIDE MITE [Concomitant]
  4. MELOXICAM [Concomitant]
  5. ENDOCORT [Concomitant]

REACTIONS (3)
  - INJECTION SITE EXTRAVASATION [None]
  - INJECTION SITE VESICLES [None]
  - INJURY [None]
